FAERS Safety Report 9410883 (Version 1)
Quarter: 2013Q3

REPORT INFORMATION
  Report Type: Spontaneous
  Country: US (occurrence: US)
  Receive Date: 20130719
  Receipt Date: 20130719
  Transmission Date: 20140515
  Serious: Yes (Other)
  Sender: FDA-Public Use
  Company Number: PHHY2013US076324

PATIENT
  Sex: Female

DRUGS (1)
  1. ASCRIPTIN BUFFERED ARTHRITISPAIN CAPLETS [Suspect]
     Route: 048

REACTIONS (1)
  - Drug dependence [Unknown]
